FAERS Safety Report 25163864 (Version 1)
Quarter: 2025Q2

REPORT INFORMATION
  Report Type: Spontaneous
  Country: US (occurrence: US)
  Receive Date: 20250405
  Receipt Date: 20250405
  Transmission Date: 20250717
  Serious: No
  Sender: SANOFI AVENTIS
  Company Number: US-SA-2025SA095472

PATIENT
  Age: 83 Year
  Sex: Female

DRUGS (1)
  1. DUPIXENT [Suspect]
     Active Substance: DUPILUMAB
     Indication: Chronic obstructive pulmonary disease
     Dosage: 300 MG, QOW
     Route: 058
     Dates: start: 20250122

REACTIONS (10)
  - COVID-19 [Unknown]
  - Sinus congestion [Unknown]
  - Malaise [Unknown]
  - Fatigue [Unknown]
  - Bronchitis [Unknown]
  - Cough [Unknown]
  - Secretion discharge [Unknown]
  - Epistaxis [Unknown]
  - Asthenia [Unknown]
  - Injection site pain [Unknown]

NARRATIVE: CASE EVENT DATE: 20250122
